FAERS Safety Report 10756704 (Version 1)
Quarter: 2015Q1

REPORT INFORMATION
  Report Type: Spontaneous
  Country: FR (occurrence: FR)
  Receive Date: 20150202
  Receipt Date: 20150202
  Transmission Date: 20150721
  Serious: Yes (Death)
  Sender: FDA-Public Use
  Company Number: FR-BRISTOL-MYERS SQUIBB COMPANY-BMS-2015-003725

PATIENT
  Age: 67 Year
  Sex: Male

DRUGS (2)
  1. HYDREA [Suspect]
     Active Substance: HYDROXYUREA
     Indication: THROMBOCYTOSIS
     Dosage: UNK MG, UNK
     Route: 048
     Dates: start: 1982
  2. VERCYTE [Suspect]
     Active Substance: PIPOBROMAN
     Indication: THROMBOCYTOSIS
     Dosage: UNK MG, UNK
     Route: 065
     Dates: start: 1982

REACTIONS (1)
  - Acute myeloid leukaemia [Fatal]

NARRATIVE: CASE EVENT DATE: 20130322
